FAERS Safety Report 24699249 (Version 1)
Quarter: 2024Q4

REPORT INFORMATION
  Report Type: Spontaneous
  Country: PL (occurrence: PL)
  Receive Date: 20241205
  Receipt Date: 20241205
  Transmission Date: 20250114
  Serious: Yes (Death)
  Sender: BOEHRINGER INGELHEIM
  Company Number: PL-BoehringerIngelheim-2024-BI-066663

PATIENT
  Age: 76 Year
  Sex: Female
  Weight: 53 kg

DRUGS (9)
  1. OFEV [Suspect]
     Active Substance: NINTEDANIB
     Indication: Product used for unknown indication
     Dates: start: 20231212
  2. Encorton 20 [Concomitant]
     Indication: Product used for unknown indication
  3. Mycofit 500 [Concomitant]
     Indication: Product used for unknown indication
  4. BETAHISTINE [Concomitant]
     Active Substance: BETAHISTINE
     Indication: Product used for unknown indication
  5. RAMIPRIL [Concomitant]
     Active Substance: RAMIPRIL
     Indication: Product used for unknown indication
  6. Calperox [Concomitant]
     Indication: Product used for unknown indication
  7. Mezotral [Concomitant]
     Indication: Product used for unknown indication
  8. KALIPOR [Concomitant]
     Indication: Product used for unknown indication
  9. Nobilet [Concomitant]
     Indication: Product used for unknown indication

REACTIONS (2)
  - Death [Fatal]
  - Pulmonary tuberculosis [Unknown]

NARRATIVE: CASE EVENT DATE: 20240601
